FAERS Safety Report 25880193 (Version 1)
Quarter: 2025Q4

REPORT INFORMATION
  Report Type: Spontaneous
  Country: EU (occurrence: EU)
  Receive Date: 20251004
  Receipt Date: 20251004
  Transmission Date: 20260118
  Serious: Yes (Hospitalization, Other)
  Sender: ADAPTIS PHARMA INDIA
  Company Number: EU-Adaptis Pharma Private Limited-2185912

PATIENT
  Age: 59 Year
  Sex: Female

DRUGS (13)
  1. DULOXETINE HYDROCHLORIDE [Suspect]
     Active Substance: DULOXETINE HYDROCHLORIDE
     Indication: Depression
  2. ROSUVASTATIN [Concomitant]
     Active Substance: ROSUVASTATIN
  3. ETILEFRINE [Concomitant]
     Active Substance: ETILEFRINE
  4. DIAZEPAM [Concomitant]
     Active Substance: DIAZEPAM
  5. AMITRIPTYLINE [Concomitant]
     Active Substance: AMITRIPTYLINE
  6. ALPRAZOLAM [Concomitant]
     Active Substance: ALPRAZOLAM
  7. LEVOTHYROXINE [Concomitant]
     Active Substance: LEVOTHYROXINE
  8. ASPIRIN [Concomitant]
     Active Substance: ASPIRIN
  9. ACETAMINOPHEN [Concomitant]
     Active Substance: ACETAMINOPHEN
  10. MEDROL [Concomitant]
     Active Substance: METHYLPREDNISOLONE
  11. METOCLOPRAMIDE [Interacting]
     Active Substance: METOCLOPRAMIDE
  12. Cystiphane [Concomitant]
  13. PANTOPRAZOLE [Concomitant]
     Active Substance: PANTOPRAZOLE

REACTIONS (2)
  - Drug interaction [Unknown]
  - Sulphaemoglobinaemia [Recovered/Resolved]
